FAERS Safety Report 16688801 (Version 1)
Quarter: 2019Q3

REPORT INFORMATION
  Report Type: Report from Study
  Country: US (occurrence: US)
  Receive Date: 20190809
  Receipt Date: 20190809
  Transmission Date: 20191004
  Serious: Yes (Hospitalization, Other)
  Sender: FDA-Public Use
  Company Number: US-GILEAD-2019-0422738

PATIENT
  Age: 73 Year
  Sex: Female

DRUGS (21)
  1. BISACODYL. [Concomitant]
     Active Substance: BISACODYL
  2. BUMETANIDE. [Concomitant]
     Active Substance: BUMETANIDE
  3. DOCUSATE [Concomitant]
     Active Substance: DOCUSATE
  4. PANTOPRAZOLE [Concomitant]
     Active Substance: PANTOPRAZOLE
  5. POTASSIUM [Concomitant]
     Active Substance: POTASSIUM
  6. SILDENAFIL. [Concomitant]
     Active Substance: SILDENAFIL
  7. DEXTROSE. [Concomitant]
     Active Substance: DEXTROSE
  8. MELATONIN [Concomitant]
     Active Substance: MELATONIN
  9. ASPIRIN (E.C.) [Concomitant]
     Active Substance: ASPIRIN
  10. MIRTAZAPINE. [Concomitant]
     Active Substance: MIRTAZAPINE
  11. AMBRISENTAN [Suspect]
     Active Substance: AMBRISENTAN
     Indication: PULMONARY ARTERIAL HYPERTENSION
     Dosage: 10 MG, QD
     Route: 065
     Dates: start: 20190307
  12. AMLODIPINE [Concomitant]
     Active Substance: AMLODIPINE BESYLATE
  13. ISOSORBIDE. [Concomitant]
     Active Substance: ISOSORBIDE
  14. SENNAE [Concomitant]
  15. TYLENOL [Concomitant]
     Active Substance: ACETAMINOPHEN
  16. LOSARTAN. [Concomitant]
     Active Substance: LOSARTAN
  17. ESCITALOPRAM [Concomitant]
     Active Substance: ESCITALOPRAM OXALATE
  18. MONTELUKAST [Concomitant]
     Active Substance: MONTELUKAST SODIUM
  19. ONDANSETRON [Concomitant]
     Active Substance: ONDANSETRON
  20. MAGNESIUM [Concomitant]
     Active Substance: MAGNESIUM
  21. LIDOCAINE. [Concomitant]
     Active Substance: LIDOCAINE

REACTIONS (1)
  - Catheterisation cardiac [Recovered/Resolved]
